FAERS Safety Report 4718102-9 (Version None)
Quarter: 2005Q3

REPORT INFORMATION
  Report Type: 
  Country: None (occurrence: None)
  Receive Date: 20050720
  Receipt Date: 20050613
  Transmission Date: 20060218
  Serious: Yes (Hospitalization)
  Sender: FDA-Public Use
  Company Number: US-BRISTOL-MYERS SQUIBB COMPANY-13004080

PATIENT
  Age: 77 Year
  Sex: Male

DRUGS (13)
  1. CETUXIMAB [Suspect]
     Indication: NON-SMALL CELL LUNG CANCER
     Route: 042
     Dates: start: 20050329, end: 20050329
  2. CARBOPLATIN [Suspect]
     Indication: NON-SMALL CELL LUNG CANCER
     Route: 042
     Dates: start: 20050404, end: 20050404
  3. PACLITAXEL [Suspect]
     Indication: NON-SMALL CELL LUNG CANCER
     Dosage: WEEKLY X 3.
     Route: 042
     Dates: start: 20050404, end: 20050404
  4. ADVAIR DISKUS 100/50 [Concomitant]
     Dosage: 100/50
     Dates: start: 20050101
  5. DIOVAN [Concomitant]
     Dates: start: 20030101
  6. DOXAZOSIN MESYLATE [Concomitant]
     Dates: start: 20000101
  7. FUROSEMIDE [Concomitant]
     Dates: start: 20000101
  8. GUANETHIDINE SULFATE [Concomitant]
     Dates: start: 20000101
  9. LISINOPRIL [Concomitant]
     Dates: start: 20040301
  10. PROTONIX [Concomitant]
     Dates: start: 20050101
  11. TUSSIONEX [Concomitant]
     Dates: start: 20050101
  12. UNISOM [Concomitant]
     Dates: start: 20050101
  13. VERAPAMIL [Concomitant]
     Dates: start: 20030101

REACTIONS (1)
  - ATRIAL FIBRILLATION [None]
